FAERS Safety Report 14109752 (Version 2)
Quarter: 2017Q4

REPORT INFORMATION
  Report Type: Spontaneous
  Country: JP (occurrence: JP)
  Receive Date: 20171020
  Receipt Date: 20171107
  Transmission Date: 20180321
  Serious: Yes (Life-Threatening, Other)
  Sender: FDA-Public Use
  Company Number: JP-BAXTER-2017BAX035674

PATIENT
  Age: 63 Year
  Sex: Female

DRUGS (9)
  1. DROPERIDOL. [Suspect]
     Active Substance: DROPERIDOL
     Indication: EPIDURAL ANAESTHESIA
     Dosage: STARTED IN MID FEB AND DISCONTINUED IN MID FEB
     Route: 008
     Dates: start: 201702, end: 201702
  2. NOREPINEPHRINE. [Suspect]
     Active Substance: NOREPINEPHRINE
     Indication: BLOOD PRESSURE MANAGEMENT
     Dosage: CONTINUOUS ADMINISTRATION (STARTED IN MID FEB AND DISCONTINUED IN MID FEB)
     Route: 065
     Dates: start: 201702, end: 201702
  3. PROPOFOL. [Concomitant]
     Active Substance: PROPOFOL
     Indication: INDUCTION OF ANAESTHESIA
     Dosage: STARTED IN MID FEB AND DISCONTINUED IN MID FEB
     Route: 065
     Dates: start: 201702, end: 201702
  4. ROCURONIUM [Concomitant]
     Active Substance: ROCURONIUM BROMIDE
     Indication: INDUCTION OF ANAESTHESIA
     Dosage: STARTED IN MID FEB AND DISCONTINUED IN MID FEB
     Route: 065
     Dates: start: 201702, end: 201702
  5. FENTANYL. [Concomitant]
     Active Substance: FENTANYL
     Indication: INDUCTION OF ANAESTHESIA
     Dosage: STARTED IN MID FEB AND DISCONTINUED IN MID FEB
     Route: 065
     Dates: start: 201702, end: 201702
  6. SUPRANE [Suspect]
     Active Substance: DESFLURANE
     Indication: MAINTENANCE OF ANAESTHESIA
     Dosage: STARTED IN MID FEB AND DISCONTINUED IN MID FEB
     Route: 055
     Dates: start: 201702, end: 201702
  7. PHENYLEPHRINE [Concomitant]
     Active Substance: PHENYLEPHRINE\PHENYLEPHRINE HYDROCHLORIDE
     Indication: BLOOD PRESSURE MANAGEMENT
     Dosage: CONTINUOUS ADMINISTRATION (STARTED IN MID FEB AND DISCONTINUED IN MID FEB)
     Route: 065
     Dates: start: 201702, end: 201702
  8. REMIFENTANIL [Concomitant]
     Active Substance: REMIFENTANIL
     Indication: MAINTENANCE OF ANAESTHESIA
     Dosage: STARTED IN MID FEB AND DISCONTINUED IN MID FEB
     Route: 065
     Dates: start: 201702, end: 201702
  9. LEVOBUPIVACAINE [Concomitant]
     Active Substance: LEVOBUPIVACAINE
     Indication: EPIDURAL ANAESTHESIA
     Dosage: STARTED IN MID FEB AND DISCONTINUED IN MID FEB
     Route: 008
     Dates: start: 201702, end: 201702

REACTIONS (2)
  - Electrocardiogram QT prolonged [Recovered/Resolved]
  - Torsade de pointes [Recovered/Resolved]

NARRATIVE: CASE EVENT DATE: 201702
